FAERS Safety Report 13550049 (Version 1)
Quarter: 2017Q2

REPORT INFORMATION
  Report Type: Spontaneous
  Country: DE (occurrence: DE)
  Receive Date: 20170516
  Receipt Date: 20170516
  Transmission Date: 20170830
  Serious: Yes (Other)
  Sender: FDA-Public Use
  Company Number: DE-MYLANLABS-2017M1028412

PATIENT

DRUGS (4)
  1. DOXORUBICIN [Suspect]
     Active Substance: DOXORUBICIN
     Indication: BLADDER CANCER
     Route: 065
  2. METHOTREXATE. [Concomitant]
     Active Substance: METHOTREXATE
     Indication: BLADDER CANCER
     Route: 065
  3. VINBLASTINE [Concomitant]
     Active Substance: VINBLASTINE
     Indication: BLADDER CANCER
     Route: 065
  4. CISPLATIN. [Concomitant]
     Active Substance: CISPLATIN
     Indication: BLADDER CANCER
     Route: 065

REACTIONS (2)
  - Left ventricular dysfunction [Recovering/Resolving]
  - Coronary artery disease [Recovering/Resolving]
